FAERS Safety Report 9865698 (Version 1)
Quarter: 2014Q1

REPORT INFORMATION
  Report Type: Spontaneous
  Country: US (occurrence: US)
  Receive Date: 20140203
  Receipt Date: 20140203
  Transmission Date: 20141002
  Serious: No
  Sender: FDA-Public Use
  Company Number: US-ALLERGAN-1306967US

PATIENT
  Age: 86 Year
  Sex: Female

DRUGS (6)
  1. RESTASIS [Suspect]
     Indication: DRY EYE
     Dosage: 2 GTT, BID
     Route: 047
     Dates: start: 2012
  2. ATENOLOL [Concomitant]
     Indication: CARDIAC DISORDER
     Dosage: UNK
  3. FLOVENT [Concomitant]
     Indication: ASTHMA
     Dosage: UNK
     Route: 055
  4. PRO AIR [Concomitant]
     Indication: ASTHMA
  5. SIMVASTATIN [Concomitant]
     Indication: BLOOD CHOLESTEROL INCREASED
     Dosage: UNK
  6. NORVASC                            /00972401/ [Concomitant]
     Indication: HYPERTENSION
     Dosage: UNK

REACTIONS (1)
  - Eye irritation [Unknown]
